FAERS Safety Report 14277671 (Version 3)
Quarter: 2018Q2

REPORT INFORMATION
  Report Type: Report from Study
  Country: US (occurrence: US)
  Receive Date: 20171212
  Receipt Date: 20180509
  Transmission Date: 20180711
  Serious: Yes (Other)
  Sender: FDA-Public Use
  Company Number: US-GILEAD-2017-0309600

PATIENT
  Age: 70 Year
  Sex: Female

DRUGS (2)
  1. OXYGEN. [Concomitant]
     Active Substance: OXYGEN
  2. AMBRISENTAN [Suspect]
     Active Substance: AMBRISENTAN
     Indication: PRODUCT USED FOR UNKNOWN INDICATION
     Dosage: 10 MG, UNK
     Route: 065
     Dates: start: 20171006

REACTIONS (6)
  - Cataract [Unknown]
  - Fluid retention [Unknown]
  - Weight fluctuation [Not Recovered/Not Resolved]
  - Weight increased [Unknown]
  - Peripheral swelling [Unknown]
  - Ocular icterus [Not Recovered/Not Resolved]
